FAERS Safety Report 5781799-9 (Version None)
Quarter: 2008Q2

REPORT INFORMATION
  Report Type: 
  Country: None (occurrence: None)
  Receive Date: 20080623
  Receipt Date: 20071210
  Transmission Date: 20081010
  Serious: No
  Sender: FDA-Public Use
  Company Number: US-ASTRAZENECA-2007UW28077

PATIENT
  Age: 5 Year
  Sex: Male
  Weight: 19.5 kg

DRUGS (4)
  1. RHINOCORT [Suspect]
     Indication: SINUSITIS
     Route: 045
     Dates: start: 20070701
  2. RHINOCORT [Suspect]
     Route: 045
     Dates: start: 20071207
  3. PREDNISONE TAB [Concomitant]
  4. VANTIN [Concomitant]

REACTIONS (2)
  - HEADACHE [None]
  - RHINORRHOEA [None]
